FAERS Safety Report 7046728-9 (Version None)
Quarter: 2010Q4

REPORT INFORMATION
  Report Type: 
  Country: None (occurrence: None)
  Receive Date: 20101015
  Receipt Date: 20101006
  Transmission Date: 20110411
  Serious: Yes (Hospitalization)
  Sender: FDA-Public Use
  Company Number: FR-JNJFOC-20101002875

PATIENT
  Sex: Female

DRUGS (11)
  1. HALDOL [Suspect]
     Indication: PRODUCT USED FOR UNKNOWN INDICATION
     Dosage: 6 GTT ON MORNING, 6 GTT ON MIDDAY AND 10 GTT ON EVENING
     Route: 048
  2. HALDOL [Suspect]
     Dosage: 15 GTT MORNING, 20 GTT MIDDAY AND 12 GTT EVENING
     Route: 048
  3. SERESTA [Suspect]
     Indication: PRODUCT USED FOR UNKNOWN INDICATION
     Dosage: 1/2 TABLET PER DAY (EVENING)
     Route: 048
  4. SERESTA [Suspect]
     Route: 048
  5. EXELON [Suspect]
     Indication: DEMENTIA ALZHEIMER'S TYPE
     Route: 003
  6. SEROPLEX [Suspect]
     Indication: PRODUCT USED FOR UNKNOWN INDICATION
     Route: 048
  7. SEROPLEX [Suspect]
     Dosage: 1/2 TABLET ON MORNING
     Route: 048
  8. SINGULAIR [Concomitant]
     Indication: ASTHMA
     Route: 048
  9. PREVISCAN (FLUINDIONE) [Concomitant]
     Indication: VENA CAVA THROMBOSIS
     Route: 048
  10. TRIATEC [Concomitant]
     Indication: PRODUCT USED FOR UNKNOWN INDICATION
     Route: 048
  11. SYMBICORT [Concomitant]
     Indication: PRODUCT USED FOR UNKNOWN INDICATION
     Dosage: 400/12 MCG/DOSE TWICE PER DAY
     Route: 055

REACTIONS (11)
  - AGITATION [None]
  - AKINESIA [None]
  - AMNESIA [None]
  - BLOOD PRESSURE SYSTOLIC INCREASED [None]
  - COMMUNICATION DISORDER [None]
  - DYSSTASIA [None]
  - FALL [None]
  - GAIT DISTURBANCE [None]
  - HAEMATOMA [None]
  - INTERNATIONAL NORMALISED RATIO INCREASED [None]
  - MENTAL DISORDER [None]
